FAERS Safety Report 7427815-X (Version None)
Quarter: 2011Q2

REPORT INFORMATION
  Report Type: 
  Country: None (occurrence: None)
  Receive Date: 20110421
  Receipt Date: 20101004
  Transmission Date: 20111010
  Serious: Yes (Other)
  Sender: FDA-Public Use
  Company Number: US-BAYER-201010675NA

PATIENT
  Age: 39 Year
  Sex: Female
  Weight: 83.9 kg

DRUGS (13)
  1. YAZ [Suspect]
     Indication: MENSTRUATION IRREGULAR
  2. NEXIUM [Concomitant]
     Dosage: 20 MG, UNK
     Route: 048
  3. OMEPRAZOLE [Concomitant]
  4. YAZ [Suspect]
     Indication: CONTRACEPTION
     Dosage: UNK
     Dates: start: 20010101, end: 20070101
  5. YASMIN [Suspect]
     Indication: ACNE
  6. YASMIN [Suspect]
     Indication: MENSTRUATION IRREGULAR
  7. YAZ [Suspect]
     Indication: ACNE
  8. YAZ [Suspect]
     Indication: PROPHYLAXIS
  9. YASMIN [Suspect]
     Indication: PROPHYLAXIS
  10. YASMIN [Suspect]
     Indication: DYSMENORRHOEA
  11. YAZ [Suspect]
     Indication: DYSMENORRHOEA
  12. YASMIN [Suspect]
     Indication: CONTRACEPTION
     Dosage: UNK UNK, QD
     Dates: start: 20010101, end: 20070101
  13. PHENTERMINE [Concomitant]
     Indication: OBESITY

REACTIONS (2)
  - CHOLECYSTITIS CHRONIC [None]
  - CHOLELITHIASIS [None]
